FAERS Safety Report 10298536 (Version 1)
Quarter: 2014Q3

REPORT INFORMATION
  Report Type: Spontaneous
  Country: US (occurrence: US)
  Receive Date: 20140711
  Receipt Date: 20140711
  Transmission Date: 20150326
  Serious: No
  Sender: FDA-Public Use
  Company Number: US-ASTRAZENECA-2014SE47913

PATIENT
  Age: 1052 Month
  Sex: Female
  Weight: 67.6 kg

DRUGS (8)
  1. PRAVASTATIN [Concomitant]
     Active Substance: PRAVASTATIN\PRAVASTATIN SODIUM
     Dosage: 40 MG, CUTS IN HALF DAILY
     Route: 048
  2. VITAMIN C [Concomitant]
     Active Substance: ASCORBIC ACID
     Route: 048
  3. PRESERVISION [Concomitant]
     Indication: MACULAR DEGENERATION
     Dosage: NOT REPORTED NR
     Route: 050
     Dates: start: 2009
  4. OMEPRAZOLE. [Suspect]
     Active Substance: OMEPRAZOLE
     Indication: AFFECTIVE DISORDER
     Route: 048
     Dates: start: 2011
  5. LOSARTAN [Concomitant]
     Active Substance: LOSARTAN
     Route: 048
  6. BABY ASPIRIN [Concomitant]
     Active Substance: ASPIRIN
     Indication: ISCHAEMIC HEART DISEASE PROPHYLAXIS
     Dosage: ONE DAILY
     Route: 048
  7. SYMBICORT [Suspect]
     Active Substance: BUDESONIDE\FORMOTEROL FUMARATE DIHYDRATE
     Indication: CHRONIC OBSTRUCTIVE PULMONARY DISEASE
     Dosage: 160/4.5, 2 PUFFS BID
     Route: 055
     Dates: start: 201406
  8. AMLODOPINE [Concomitant]
     Route: 048
     Dates: start: 2013

REACTIONS (3)
  - Oesophageal pain [Not Recovered/Not Resolved]
  - Intentional product misuse [Unknown]
  - Sleep disorder due to a general medical condition [Unknown]

NARRATIVE: CASE EVENT DATE: 201406
